FAERS Safety Report 4942848-0 (Version None)
Quarter: 2006Q1

REPORT INFORMATION
  Report Type: 
  Country: None (occurrence: None)
  Receive Date: 20060309
  Receipt Date: 20060227
  Transmission Date: 20060701
  Serious: Yes (Other)
  Sender: FDA-Public Use
  Company Number: EMR64300002-14

PATIENT
  Age: 74 Year
  Sex: Male

DRUGS (6)
  1. NIASPAN [Suspect]
     Indication: DYSLIPIDAEMIA
     Dosage: 1000 MG QD PO
     Route: 048
     Dates: start: 20051117, end: 20060117
  2. AVANDAMET [Concomitant]
  3. PRAVASTATIN [Concomitant]
  4. VALSARTAN [Concomitant]
  5. GLIMEPIRIDE [Concomitant]
  6. ASPIRIN [Concomitant]

REACTIONS (6)
  - ABNORMAL DREAMS [None]
  - CONSTIPATION [None]
  - FLUSHING [None]
  - HALLUCINATION [None]
  - NAUSEA [None]
  - VOMITING [None]
